FAERS Safety Report 7385291-X (Version None)
Quarter: 2011Q1

REPORT INFORMATION
  Report Type: 
  Country: None (occurrence: None)
  Receive Date: 20110330
  Receipt Date: 20100420
  Transmission Date: 20110831
  Serious: No
  Sender: FDA-Public Use
  Company Number: US-MYLANLABS-2010S1006826

PATIENT
  Age: 56 Year
  Sex: Female
  Weight: 74.84 kg

DRUGS (3)
  1. ALENDRONATE [Concomitant]
     Indication: OSTEOPOROSIS
  2. EMSAM [Suspect]
     Indication: DEPRESSION
     Route: 062
     Dates: start: 20081001
  3. CHOLESTEROL MEDICATION [Concomitant]

REACTIONS (2)
  - LIVEDO RETICULARIS [None]
  - RASH [None]
